FAERS Safety Report 13237750 (Version 2)
Quarter: 2017Q1

REPORT INFORMATION
  Report Type: Report from Study
  Country: JP (occurrence: JP)
  Receive Date: 20170216
  Receipt Date: 20170223
  Transmission Date: 20170428
  Serious: Yes (Hospitalization)
  Sender: FDA-Public Use
  Company Number: JP-ROCHE-1764961

PATIENT
  Age: 4 Year
  Sex: Male
  Weight: 18 kg

DRUGS (16)
  1. SOL-MELCORT [Concomitant]
     Active Substance: METHYLPREDNISOLONE SODIUM SUCCINATE
     Indication: NEPHROTIC SYNDROME
     Route: 042
     Dates: start: 20150925, end: 20150927
  2. RITUXIMAB [Suspect]
     Active Substance: RITUXIMAB
     Indication: NEPHROTIC SYNDROME
     Dosage: ON 06/OCT/2015, 13/OCT/2015, AND 20/OCT/2015 RECEIVED THE SUBSEQUENT DOSES OF RITUXIMAB INFUSION
     Route: 042
     Dates: start: 20150929, end: 20151020
  3. DIPYRIDAMOLE. [Concomitant]
     Active Substance: DIPYRIDAMOLE
     Indication: NEPHROTIC SYNDROME
     Route: 048
     Dates: end: 20151117
  4. CICLOSPORIN [Concomitant]
     Active Substance: CYCLOSPORINE
  5. DEXCHLORPHENIRAMINE MALEATE. [Concomitant]
     Active Substance: DEXCHLORPHENIRAMINE MALEATE
  6. POLARAMINE [Concomitant]
     Active Substance: DEXCHLORPHENIRAMINE MALEATE
     Route: 048
     Dates: start: 20150929, end: 20151020
  7. SEPAMIT-R [Concomitant]
     Active Substance: NIFEDIPINE
     Indication: HYPERTENSION
     Route: 048
     Dates: start: 20151117
  8. VALSARTAN. [Concomitant]
     Active Substance: VALSARTAN
     Indication: HYPERTENSION
     Route: 048
     Dates: end: 20160121
  9. NEORAL [Concomitant]
     Active Substance: CYCLOSPORINE
     Indication: NEPHROTIC SYNDROME
     Dosage: CICLOSPORIN WAS INTERRUPTED FROM 19/AUG/2015 TO 21/AUG/2015, 26/AUG/2015 TO 28/AUG/2015, 19/SEP /201
     Route: 048
     Dates: end: 20150928
  10. MYCOPHENOLATE MOFETIL. [Concomitant]
     Active Substance: MYCOPHENOLATE MOFETIL
     Indication: NEPHROTIC SYNDROME
     Route: 048
     Dates: start: 20150728, end: 20160219
  11. ONEALFA [Concomitant]
     Active Substance: ALFACALCIDOL
     Indication: OSTEOPOROSIS
     Route: 048
     Dates: end: 20151117
  12. ACETAMINOPHEN. [Concomitant]
     Active Substance: ACETAMINOPHEN
     Route: 048
     Dates: start: 20150929, end: 20151020
  13. SOL-MELCORT [Concomitant]
     Active Substance: METHYLPREDNISOLONE SODIUM SUCCINATE
     Route: 042
     Dates: start: 20150929, end: 20151020
  14. SELBEX [Concomitant]
     Active Substance: TEPRENONE
     Indication: ULCER
     Route: 048
     Dates: end: 20151117
  15. BAKTAR [Concomitant]
     Active Substance: SULFAMETHOXAZOLE\TRIMETHOPRIM
     Indication: INFECTION PROPHYLAXIS
     Dosage: ALTERNATE DAY
     Route: 048
     Dates: start: 20151001
  16. METHYLPREDNISOLONE SODIUM SUCCINATE. [Concomitant]
     Active Substance: METHYLPREDNISOLONE SODIUM SUCCINATE

REACTIONS (5)
  - Gastroenteritis [Recovered/Resolved]
  - Rash [Recovered/Resolved]
  - Nephrotic syndrome [Recovering/Resolving]
  - Cough [Recovered/Resolved]
  - Nephrotic syndrome [Recovered/Resolved]

NARRATIVE: CASE EVENT DATE: 20150929
